FAERS Safety Report 9009046 (Version 2)
Quarter: 2013Q1

REPORT INFORMATION
  Report Type: Report from Study
  Country: FR (occurrence: FR)
  Receive Date: 20130111
  Receipt Date: 20130321
  Transmission Date: 20140127
  Serious: No
  Sender: FDA-Public Use
  Company Number: FR-ABBOTT-13P-056-1033972-00

PATIENT
  Age: 5 Year
  Sex: Male
  Weight: 22 kg

DRUGS (3)
  1. HUMIRA [Suspect]
     Indication: JUVENILE IDIOPATHIC ARTHRITIS
     Route: 058
     Dates: start: 201209
  2. HUMIRA [Suspect]
     Indication: UVEITIS
  3. CORTANCYL [Concomitant]
     Indication: UVEITIS
     Route: 048

REACTIONS (1)
  - Lung disorder [Recovered/Resolved]
